FAERS Safety Report 5820289-1 (Version None)
Quarter: 2008Q3

REPORT INFORMATION
  Report Type: 
  Country: None (occurrence: None)
  Receive Date: 20080724
  Receipt Date: 20070531
  Transmission Date: 20090109
  Serious: No
  Sender: FDA-Public Use
  Company Number: A0653702A

PATIENT
  Age: 64 Year
  Sex: Female

DRUGS (4)
  1. AVANDIA [Suspect]
     Dosage: 4MG PER DAY
     Route: 048
  2. PREVACID [Concomitant]
  3. TRAZODONE HCL [Concomitant]
  4. DICYCLOMINE [Concomitant]

REACTIONS (1)
  - HYPERSENSITIVITY [None]
